FAERS Safety Report 7398753-6 (Version None)
Quarter: 2011Q2

REPORT INFORMATION
  Report Type: 
  Country: None (occurrence: None)
  Receive Date: 20110401
  Receipt Date: 20110401
  Transmission Date: 20111010
  Serious: Yes (Life-Threatening, Hospitalization)
  Sender: FDA-Public Use
  Company Number: None

PATIENT
  Age: 87 Year
  Sex: Male
  Weight: 77 kg

DRUGS (10)
  1. VANCOMYCIN [Concomitant]
  2. CLOPIDOGREL [Suspect]
     Indication: PERIPHERAL VASCULAR DISORDER
     Dosage: 75 MG DAILY PO
     Route: 048
  3. FLUTICASONE/SALMETEROL [Concomitant]
  4. GUAIFENESIN LA [Concomitant]
  5. TAMSULOSIN [Concomitant]
  6. ASPIRIN [Suspect]
     Indication: PERIPHERAL VASCULAR DISORDER
     Dosage: 81 MG DAILY PO
     Route: 048
  7. METOPROLOL [Concomitant]
  8. VALSARTAN [Concomitant]
  9. CALCIUM + VITAMIN D [Concomitant]
  10. DULOXETINE [Concomitant]

REACTIONS (6)
  - TOE AMPUTATION [None]
  - GASTRIC ULCER [None]
  - FAECES DISCOLOURED [None]
  - HAEMOGLOBIN DECREASED [None]
  - HYPOTENSION [None]
  - HAEMATOCRIT DECREASED [None]
